FAERS Safety Report 10041422 (Version 1)
Quarter: 2014Q1

REPORT INFORMATION
  Report Type: Spontaneous
  Country: HR (occurrence: HR)
  Receive Date: 20140327
  Receipt Date: 20140327
  Transmission Date: 20141002
  Serious: Yes (Other)
  Sender: FDA-Public Use
  Company Number: HR-WATSON-2014-05437

PATIENT
  Age: 52 Year
  Sex: Female

DRUGS (1)
  1. TAMOXIFEN (UNKNOWN) [Suspect]
     Indication: SCLEROSING ENCAPSULATING PERITONITIS
     Dosage: 20 MG, DAILY
     Route: 065

REACTIONS (1)
  - Endometrial cancer [Recovered/Resolved]
